FAERS Safety Report 25567634 (Version 1)
Quarter: 2025Q3

REPORT INFORMATION
  Report Type: Spontaneous
  Country: US (occurrence: US)
  Receive Date: 20250716
  Receipt Date: 20250716
  Transmission Date: 20251021
  Serious: Yes (Other)
  Sender: GLAXOSMITHKLINE
  Company Number: US-GSK-US2025GSK088861

PATIENT
  Age: 33 Year
  Sex: Female

DRUGS (10)
  1. LAMOTRIGINE [Suspect]
     Active Substance: LAMOTRIGINE
     Indication: Epilepsy
     Dosage: 100 MG, BID
  2. LEVETIRACETAM [Suspect]
     Active Substance: LEVETIRACETAM
     Indication: Epilepsy
     Dosage: 500 MG, BID
  3. SERTRALINE [Concomitant]
     Active Substance: SERTRALINE HYDROCHLORIDE
     Indication: Depression
     Dosage: 50 MG, 1D
  4. ZONISAMIDE [Concomitant]
     Active Substance: ZONISAMIDE
     Indication: Epilepsy
  5. LACOSAMIDE [Concomitant]
     Active Substance: LACOSAMIDE
     Indication: Epilepsy
  6. LACOSAMIDE [Concomitant]
     Active Substance: LACOSAMIDE
     Dosage: 150 MG, BID (UPTITRATED)
  7. LACOSAMIDE [Concomitant]
     Active Substance: LACOSAMIDE
     Dosage: 200 MG, BID
  8. ESLICARBAZEPINE [Concomitant]
     Active Substance: ESLICARBAZEPINE
     Indication: Epilepsy
     Dosage: 400 MG, 1D
  9. ESLICARBAZEPINE [Concomitant]
     Active Substance: ESLICARBAZEPINE
     Dosage: 800 MG, 1D
  10. CENOBAMATE [Concomitant]
     Active Substance: CENOBAMATE
     Indication: Seizure

REACTIONS (3)
  - Suicidal ideation [Unknown]
  - Depression [Unknown]
  - Memory impairment [Unknown]
